FAERS Safety Report 8174242-6 (Version None)
Quarter: 2012Q1

REPORT INFORMATION
  Report Type: 
  Country: None (occurrence: None)
  Receive Date: 20120229
  Receipt Date: 20120222
  Transmission Date: 20120608
  Serious: Yes (Hospitalization, Other)
  Sender: FDA-Public Use
  Company Number: CA-JNJFOC-20111103303

PATIENT
  Sex: Male
  Weight: 77.6 kg

DRUGS (2)
  1. REMICADE [Suspect]
     Indication: CROHN'S DISEASE
     Route: 042
     Dates: start: 20091014
  2. REMICADE [Suspect]
     Route: 042
     Dates: end: 20111001

REACTIONS (2)
  - DRUG INEFFECTIVE [None]
  - INTESTINAL OPERATION [None]
